FAERS Safety Report 8144164-5 (Version None)
Quarter: 2012Q1

REPORT INFORMATION
  Report Type: 
  Country: None (occurrence: None)
  Receive Date: 20120217
  Receipt Date: 20120213
  Transmission Date: 20120608
  Serious: No
  Sender: FDA-Public Use
  Company Number: US-PFIZER INC-2012023245

PATIENT
  Sex: Female
  Weight: 62 kg

DRUGS (7)
  1. DIAZEPAM [Concomitant]
     Dosage: UNK
  2. LIPITOR [Suspect]
     Indication: BLOOD CHOLESTEROL INCREASED
     Dosage: 40 MG, 1X/DAY
     Route: 048
     Dates: start: 20111122, end: 20120201
  3. OXYCODONE [Concomitant]
     Indication: PAIN
     Dosage: 5 MG TWO TIMES A DAY AS NEEDED
     Route: 048
  4. PRIMACOR [Concomitant]
     Indication: EMPHYSEMA
     Dosage: 0.5 MG, 2X/DAY
  5. DURAGESIC-100 [Suspect]
     Indication: PAIN
     Dosage: 100 UG, UNK
     Route: 062
     Dates: end: 20110101
  6. NEXIUM [Concomitant]
     Indication: GASTROOESOPHAGEAL REFLUX DISEASE
     Dosage: 40 MG, DAILY
     Route: 048
  7. DIAZEPAM [Concomitant]
     Indication: ANXIETY
     Dosage: 10 MG, 2X/DAY
     Route: 048

REACTIONS (5)
  - GASTRIC DISORDER [None]
  - MUSCLE SPASMS [None]
  - CHEST PAIN [None]
  - HEADACHE [None]
  - HYPOAESTHESIA [None]
